FAERS Safety Report 15165139 (Version 1)
Quarter: 2018Q3

REPORT INFORMATION
  Report Type: Spontaneous
  Country: AU (occurrence: AU)
  Receive Date: 20180719
  Receipt Date: 20180719
  Transmission Date: 20181010
  Serious: Yes (Hospitalization)
  Sender: FDA-Public Use
  Company Number: AU-ALEMBIC PHARMACUETICALS LIMITED-2018SCAL000485

PATIENT

DRUGS (3)
  1. QUETIAPINE FUMARATE. [Suspect]
     Active Substance: QUETIAPINE FUMARATE
     Dosage: 600 MILLIGRAM, QD
  2. QUETIAPINE FUMARATE. [Suspect]
     Active Substance: QUETIAPINE FUMARATE
     Indication: PSYCHOTIC DISORDER
     Dosage: 200 MILLIGRAM
     Route: 065
  3. SERTRALINE [Suspect]
     Active Substance: SERTRALINE HYDROCHLORIDE
     Indication: DEPRESSION
     Dosage: UNK

REACTIONS (16)
  - Abnormal behaviour [Recovered/Resolved]
  - Depressive symptom [Recovered/Resolved]
  - Decreased appetite [Recovered/Resolved]
  - Poor quality sleep [Recovered/Resolved]
  - Catatonia [Recovered/Resolved]
  - Psychotic symptom [Recovered/Resolved]
  - Confusional state [Recovered/Resolved]
  - Decreased activity [Recovered/Resolved]
  - Muscle rigidity [Recovered/Resolved]
  - Torticollis [Recovered/Resolved]
  - Negativism [Recovered/Resolved]
  - Mood swings [Recovered/Resolved]
  - Mutism [Recovered/Resolved]
  - Hallucination, auditory [Recovered/Resolved]
  - Withdrawal syndrome [Recovered/Resolved]
  - Neglect of personal appearance [Recovered/Resolved]
